FAERS Safety Report 4893491-3 (Version None)
Quarter: 2006Q1

REPORT INFORMATION
  Report Type: 
  Country: None (occurrence: None)
  Receive Date: 20060127
  Receipt Date: 20050822
  Transmission Date: 20060701
  Serious: No
  Sender: FDA-Public Use
  Company Number: US-BRISTOL-MYERS SQUIBB COMPANY-13102025

PATIENT
  Sex: Female

DRUGS (2)
  1. KENALOG [Suspect]
     Indication: HEADACHE
     Route: 058
     Dates: start: 20010725, end: 20010801
  2. LIDOCAINE [Suspect]
     Route: 058
     Dates: start: 20050725, end: 20050801

REACTIONS (7)
  - AMENORRHOEA [None]
  - HAIR GROWTH ABNORMAL [None]
  - HEADACHE [None]
  - HOT FLUSH [None]
  - HYPERSENSITIVITY [None]
  - MUSCLE ATROPHY [None]
  - NECROSIS [None]
